FAERS Safety Report 15942974 (Version 1)
Quarter: 2019Q1

REPORT INFORMATION
  Report Type: Spontaneous
  Country: US (occurrence: US)
  Receive Date: 20190117
  Receipt Date: 20190117
  Transmission Date: 20190417
  Serious: Yes (Hospitalization)
  Sender: FDA-Public Use
  Company Number: None

PATIENT
  Age: 68 Year
  Sex: Male
  Weight: 127 kg

DRUGS (1)
  1. H.P. ACTHAR [Suspect]
     Active Substance: CORTICOTROPIN
     Route: 058
     Dates: start: 20180927, end: 20181213

REACTIONS (9)
  - Oedema peripheral [None]
  - Nephrotic syndrome [None]
  - Chronic allograft nephropathy [None]
  - Metabolic alkalosis [None]
  - Contusion [None]
  - Kidney transplant rejection [None]
  - Acute kidney injury [None]
  - Dyspnoea [None]
  - Hypertension [None]

NARRATIVE: CASE EVENT DATE: 20181228
